FAERS Safety Report 8987675 (Version 1)
Quarter: 2012Q4

REPORT INFORMATION
  Report Type: 
  Country: US (occurrence: US)
  Receive Date: 20121227
  Receipt Date: 20121227
  Transmission Date: 20130627
  Serious: No
  Sender: FDA-Public Use
  Company Number: US-ASTRAZENECA-2012SE93355

PATIENT
  Age: 88 Year
  Sex: Male
  Weight: 100.2 kg

DRUGS (5)
  1. CRESTOR [Suspect]
     Indication: HYPERTENSION
     Route: 048
     Dates: start: 20121004, end: 201211
  2. CRESTOR [Suspect]
     Indication: HYPERTENSION
     Route: 048
     Dates: start: 20121012
  3. CRESTOR [Suspect]
     Indication: HYPERTENSION
     Route: 048
     Dates: start: 201211
  4. BAYER ASPIRIN [Concomitant]
     Indication: ANTICOAGULANT THERAPY
  5. MEDIFED [Concomitant]
     Indication: HYPERTENSION

REACTIONS (10)
  - Chromaturia [Recovering/Resolving]
  - Back pain [Recovering/Resolving]
  - Sensation of foreign body [Recovered/Resolved]
  - Renal pain [Unknown]
  - Constipation [Not Recovered/Not Resolved]
  - Arthralgia [Recovering/Resolving]
  - Muscular weakness [Recovering/Resolving]
  - Pain in extremity [Recovered/Resolved]
  - Asthenia [Recovered/Resolved]
  - Dizziness [Recovered/Resolved]
